FAERS Safety Report 5218792-0 (Version None)
Quarter: 2007Q1

REPORT INFORMATION
  Report Type: 
  Country: None (occurrence: None)
  Receive Date: 20070123
  Receipt Date: 20070108
  Transmission Date: 20070707
  Serious: Yes (Other)
  Sender: FDA-Public Use
  Company Number: 2006PV025651

PATIENT
  Age: 55 Year
  Sex: Female
  Weight: 71.6683 kg

DRUGS (11)
  1. BYETTA [Suspect]
     Indication: DIABETES MELLITUS NON-INSULIN-DEPENDENT
     Dosage: 10 MCG;BID;SC
     Route: 058
     Dates: start: 20060907, end: 20061009
  2. BYETTA [Suspect]
     Indication: DIABETES MELLITUS NON-INSULIN-DEPENDENT
     Dosage: 10 MCG;BID;SC
     Route: 058
     Dates: start: 20061009
  3. NEXIUM [Concomitant]
  4. VICODIN [Concomitant]
  5. CLINORIL [Concomitant]
  6. NORFLEX [Concomitant]
  7. OTC ANTIHISTAMINE [Concomitant]
  8. LIPITOR [Concomitant]
  9. GLUCOPHAGE [Concomitant]
  10. GLIPIZIDE [Concomitant]
  11. ZEGERID [Concomitant]

REACTIONS (14)
  - ABDOMINAL PAIN UPPER [None]
  - BLOOD GLUCOSE DECREASED [None]
  - BLOOD GLUCOSE INCREASED [None]
  - CHEST PAIN [None]
  - DECREASED APPETITE [None]
  - DIZZINESS [None]
  - DYSPNOEA [None]
  - HEADACHE [None]
  - INJECTION SITE PAIN [None]
  - NAUSEA [None]
  - URINARY TRACT INFECTION [None]
  - URTICARIA [None]
  - VOMITING [None]
  - WEIGHT DECREASED [None]
